FAERS Safety Report 6695374-5 (Version None)
Quarter: 2010Q2

REPORT INFORMATION
  Report Type: 
  Country: None (occurrence: None)
  Receive Date: 20100423
  Receipt Date: 20100423
  Transmission Date: 20101027
  Serious: Yes (Hospitalization)
  Sender: FDA-Public Use
  Company Number: None

PATIENT
  Age: 86 Year
  Sex: Male
  Weight: 65.1 kg

DRUGS (11)
  1. ASPIRIN [Suspect]
     Indication: AORTIC VALVE REPLACEMENT
     Dosage: 81 MG DAILY PO, CHRONIC
     Route: 048
  2. ETODOLAC [Suspect]
     Indication: ARTHRITIS
     Dosage: 300 MG BID PRN PO, CHRONIC
     Route: 048
  3. COUMADIN [Suspect]
     Indication: ATRIAL FIBRILLATION
     Dosage: 5 MG DAILY PO , CHRONIC
     Route: 048
  4. OMEPRAZOLE [Concomitant]
  5. GABAPENTIN [Concomitant]
  6. LISINOPRIL AND HYDROCHLOROTHIAZIDE [Concomitant]
  7. VIT D [Concomitant]
  8. VIT B12 [Concomitant]
  9. VIT C [Concomitant]
  10. FISH OIL [Concomitant]
  11. AVELOX [Concomitant]

REACTIONS (4)
  - INTERNATIONAL NORMALISED RATIO INCREASED [None]
  - OCCULT BLOOD POSITIVE [None]
  - SICK SINUS SYNDROME [None]
  - SYNCOPE [None]
